FAERS Safety Report 24352899 (Version 1)
Quarter: 2024Q3

REPORT INFORMATION
  Report Type: Spontaneous
  Country: CN (occurrence: CN)
  Receive Date: 20240923
  Receipt Date: 20240923
  Transmission Date: 20241017
  Serious: Yes (Other)
  Sender: ELI LILLY AND CO
  Company Number: CN-ELI_LILLY_AND_COMPANY-CN202409009279

PATIENT
  Age: 76 Year
  Sex: Male
  Weight: 84 kg

DRUGS (2)
  1. HUMALOG MIX75/25 [Suspect]
     Active Substance: INSULIN LISPRO
     Indication: Diabetes mellitus
     Dosage: 30 U, EACH MORNING
     Route: 058
     Dates: start: 2014
  2. HUMALOG MIX75/25 [Suspect]
     Active Substance: INSULIN LISPRO
     Dosage: 25 U, EACH EVENING
     Route: 058
     Dates: start: 2014

REACTIONS (20)
  - Thyroid neoplasm [Unknown]
  - Endocrine disorder [Unknown]
  - Vascular occlusion [Unknown]
  - Vascular compression [Unknown]
  - Muscle atrophy [Unknown]
  - Blood glucose increased [Unknown]
  - Eye disorder [Unknown]
  - Ear disorder [Unknown]
  - Dyspnoea [Unknown]
  - Dysphagia [Unknown]
  - Loose tooth [Unknown]
  - Toothache [Unknown]
  - Gingival swelling [Unknown]
  - Asthenia [Unknown]
  - Gait disturbance [Unknown]
  - Skin disorder [Unknown]
  - Ulcer [Unknown]
  - Muscular weakness [Unknown]
  - Body height decreased [Unknown]
  - Peripheral swelling [Unknown]

NARRATIVE: CASE EVENT DATE: 20160101
